FAERS Safety Report 25369920 (Version 1)
Quarter: 2025Q2

REPORT INFORMATION
  Report Type: Spontaneous
  Country: US (occurrence: US)
  Receive Date: 20250528
  Receipt Date: 20250528
  Transmission Date: 20250716
  Serious: No
  Sender: ETHYPHARM
  Company Number: US-MLMSERVICE-20250402-PI463781-00073-4

PATIENT
  Age: 50 Year
  Sex: Male

DRUGS (1)
  1. BUPRENORPHINE\NALOXONE [Suspect]
     Active Substance: BUPRENORPHINE\NALOXONE
     Indication: Drug use disorder

REACTIONS (2)
  - Drug withdrawal syndrome [Unknown]
  - Off label use [Unknown]
